FAERS Safety Report 18859192 (Version 1)
Quarter: 2021Q1

REPORT INFORMATION
  Report Type: Spontaneous
  Country: US (occurrence: US)
  Receive Date: 20210207
  Receipt Date: 20210207
  Transmission Date: 20210420
  Serious: No
  Sender: FDA-Public Use
  Company Number: None

PATIENT
  Sex: Male

DRUGS (1)
  1. HUMATROPE [Suspect]
     Active Substance: SOMATROPIN
     Indication: HYPOPITUITARISM
     Dosage: ?          OTHER FREQUENCY:EVERY NIGHT;?
     Route: 058
     Dates: start: 201908

REACTIONS (3)
  - Product solubility abnormal [None]
  - Product preparation issue [None]
  - Wrong technique in product usage process [None]
